FAERS Safety Report 5081476-6 (Version None)
Quarter: 2006Q3

REPORT INFORMATION
  Report Type: 
  Country: None (occurrence: None)
  Receive Date: 20060810
  Receipt Date: 20060726
  Transmission Date: 20061208
  Serious: Yes (Hospitalization)
  Sender: FDA-Public Use
  Company Number: FR200607004791

PATIENT
  Age: 71 Year
  Sex: Female

DRUGS (7)
  1. FORTEO [Suspect]
     Indication: OSTEOPOROSIS
     Dosage: 20 UG, DAILY (1/D), SUBCUTANEOUS
     Route: 058
     Dates: start: 20050501
  2. FORTEO [Concomitant]
  3. CELANCE (PERGOLIDE MESYLATE) TABLET [Concomitant]
  4. MODOPAR (BENSERAZIDE HYDROCHLORIDE, LEVODOPA) [Concomitant]
  5. DOMPERIDONE (DOMPERIDONE) [Concomitant]
  6. DUROGESIC /DEN/ (FENTANYL) [Concomitant]
  7. KALEROID (POTASSIUM CHLORIDE) [Concomitant]

REACTIONS (1)
  - PYELONEPHRITIS [None]
